FAERS Safety Report 19677084 (Version 3)
Quarter: 2022Q2

REPORT INFORMATION
  Report Type: Spontaneous
  Country: US (occurrence: US)
  Receive Date: 20210809
  Receipt Date: 20220512
  Transmission Date: 20220721
  Serious: Yes (Other)
  Sender: FDA-Public Use
  Company Number: US-CIPLA LTD.-2021US05296

PATIENT

DRUGS (9)
  1. ATAZANAVIR [Suspect]
     Active Substance: ATAZANAVIR
     Indication: HIV infection
     Dosage: 300 MG/DAY, COURSE 2
     Route: 048
     Dates: start: 20200706, end: 20200911
  2. RITONAVIR [Suspect]
     Active Substance: RITONAVIR
     Indication: HIV infection
     Dosage: 1 TAB/CAPS, TOTAL DAILY DOSE, COURSE 2
     Route: 048
     Dates: start: 20200706, end: 20200911
  3. TRIUMEQ [Suspect]
     Active Substance: ABACAVIR SULFATE\DOLUTEGRAVIR SODIUM\LAMIVUDINE
     Indication: HIV infection
     Dosage: 1 TAB/CAPS, TOTAL DAILY DOSE, COURE 1
     Route: 048
     Dates: start: 20200512
  4. EVOTAZ [Suspect]
     Active Substance: ATAZANAVIR SULFATE\COBICISTAT
     Indication: HIV infection
     Dosage: 1 TAB/CAPS, TOTAL DAILY DOSE, COURSE 1
     Route: 048
     Dates: end: 20200512
  5. BIKTARVY [Suspect]
     Active Substance: BICTEGRAVIR SODIUM\EMTRICITABINE\TENOFOVIR ALAFENAMIDE FUMARATE
     Indication: HIV infection
     Dosage: 1 TAB/CAPS, TOTAL DAILY DOSE, COURSE 1
     Route: 048
     Dates: end: 20200512
  6. RITONAVIR [Suspect]
     Active Substance: RITONAVIR
     Indication: HIV infection
     Dosage: 1 TAB/CAPS, TOTAL DAILY DOSE, COURSE 1
     Route: 048
     Dates: start: 20200512, end: 20200706
  7. RITONAVIR [Suspect]
     Active Substance: RITONAVIR
     Dosage: 1 TAB/CAPS, TOTAL DAILY DOSE, COURSE 3
     Route: 048
     Dates: start: 20200911, end: 20201126
  8. ATAZANAVIR [Suspect]
     Active Substance: ATAZANAVIR
     Indication: HIV infection
     Dosage: 300 MG/DAY, COURSE 1
     Route: 048
     Dates: start: 20200512, end: 20200706
  9. ATAZANAVIR [Suspect]
     Active Substance: ATAZANAVIR
     Dosage: 300 MG/DAY, COURSE 1
     Route: 048
     Dates: start: 20200911, end: 20201126

REACTIONS (3)
  - Polyhydramnios [Unknown]
  - Premature delivery [Unknown]
  - Exposure during pregnancy [Unknown]

NARRATIVE: CASE EVENT DATE: 20201002
